FAERS Safety Report 6153130-0 (Version None)
Quarter: 2009Q2

REPORT INFORMATION
  Report Type: 
  Country: None (occurrence: None)
  Receive Date: 20090407
  Receipt Date: 20090327
  Transmission Date: 20091009
  Serious: Yes (Hospitalization, Other)
  Sender: FDA-Public Use
  Company Number: 233426K09USA

PATIENT
  Age: 47 Year
  Sex: Female
  Weight: 68 kg

DRUGS (4)
  1. REBIF [Suspect]
     Indication: MULTIPLE SCLEROSIS
     Dosage: 44 MCG, 3 IN 1 WEEKS, SUBCUTANEOUS
     Route: 058
     Dates: start: 20070927
  2. SYNTHROID [Concomitant]
  3. POTASSIUM (POTASSIUM /00031401/) [Concomitant]
  4. WELLBUTRIN [Concomitant]

REACTIONS (4)
  - CHEST PAIN [None]
  - CONVULSION [None]
  - DYSPNOEA [None]
  - LOSS OF CONSCIOUSNESS [None]
